FAERS Safety Report 5532137-8 (Version None)
Quarter: 2007Q4

REPORT INFORMATION
  Report Type: 
  Country: None (occurrence: None)
  Receive Date: 20071130
  Receipt Date: 20071130
  Transmission Date: 20080405
  Serious: Yes (Hospitalization)
  Sender: FDA-Public Use
  Company Number: None

PATIENT
  Age: 58 Year
  Sex: Male
  Weight: 126.735 kg

DRUGS (23)
  1. TAXOTERE [Suspect]
     Indication: PROSTATE CANCER
     Dosage: 90MG IV Q 21 DAYS
     Route: 042
     Dates: start: 20071108
  2. KETOCONAZOLE [Suspect]
     Indication: PROSTATE CANCER
     Dosage: 200MG PO TID
     Route: 048
  3. ALBUTEROL [Concomitant]
  4. BUPROPION HCL [Concomitant]
  5. CYCLOBENZAPRINE HCL [Concomitant]
  6. DEXAMETHASONE TAB [Concomitant]
  7. DOCUSATE NA [Concomitant]
  8. FERROUS SULFATE TAB [Concomitant]
  9. GABAPENTIN [Concomitant]
  10. HYDROCODONE BITARTRATE [Concomitant]
  11. INSULIN [Concomitant]
  12. ISOSORBIDE DINITRATE [Concomitant]
  13. LISINOPRIL [Concomitant]
  14. METOPROLOL [Concomitant]
  15. MOMETASONE FUROATE [Concomitant]
  16. NIFEDIPINE [Concomitant]
  17. NITROGLYCERIN [Concomitant]
  18. OMEPRAZOLE [Concomitant]
  19. PROCHLOROPERAZINE [Concomitant]
  20. ROZIGLITAZONE [Concomitant]
  21. TERAZOSYN [Concomitant]
  22. TRAMADOL HCL [Concomitant]
  23. VENAFAZINE [Concomitant]

REACTIONS (4)
  - CARDIAC FAILURE CONGESTIVE [None]
  - HYPOKALAEMIA [None]
  - PRODUCTIVE COUGH [None]
  - PYREXIA [None]
